FAERS Safety Report 11086828 (Version 1)
Quarter: 2015Q2

REPORT INFORMATION
  Report Type: Report from Study
  Country: FR (occurrence: FR)
  Receive Date: 20150504
  Receipt Date: 20150504
  Transmission Date: 20150821
  Serious: Yes (Hospitalization, Other)
  Sender: FDA-Public Use
  Company Number: FR-ROCHE-1162529

PATIENT
  Age: 60 Year
  Sex: Female

DRUGS (19)
  1. RITUXIMAB [Suspect]
     Active Substance: RITUXIMAB
     Dosage: D1
     Route: 042
     Dates: start: 20080903
  2. TOCILIZUMAB [Suspect]
     Active Substance: TOCILIZUMAB
     Indication: RHEUMATOID ARTHRITIS
     Route: 065
  3. SOLUPRED (FRANCE) [Concomitant]
     Active Substance: PREDNISOLONE
  4. MIANSERINE [Concomitant]
     Active Substance: MIANSERIN HYDROCHLORIDE
  5. PRAVASTATIN [Concomitant]
     Active Substance: PRAVASTATIN\PRAVASTATIN SODIUM
  6. RITUXIMAB [Suspect]
     Active Substance: RITUXIMAB
     Dosage: D15
     Route: 042
     Dates: start: 20080917
  7. RITUXIMAB [Suspect]
     Active Substance: RITUXIMAB
     Dosage: SINGLE INFUSION
     Route: 042
     Dates: start: 20090928
  8. CORTANCYL [Concomitant]
     Active Substance: PREDNISONE
     Dosage: DAILY
     Route: 065
  9. LEVOTHYROX [Concomitant]
     Active Substance: LEVOTHYROXINE
  10. RAMIPRIL. [Concomitant]
     Active Substance: RAMIPRIL
  11. KALEORID [Concomitant]
     Active Substance: POTASSIUM CHLORIDE
  12. RITUXIMAB [Suspect]
     Active Substance: RITUXIMAB
     Indication: RHEUMATOID ARTHRITIS
     Dosage: D1
     Route: 042
     Dates: start: 20080207
  13. DEDROGYL [Concomitant]
     Active Substance: CALCIFEDIOL
  14. ZOLPIDEM [Concomitant]
     Active Substance: ZOLPIDEM\ZOLPIDEM TARTRATE
  15. RITUXIMAB [Suspect]
     Active Substance: RITUXIMAB
     Dosage: D15
     Route: 042
     Dates: start: 20080221
  16. TOPALGIC LP [Concomitant]
     Active Substance: TRAMADOL
  17. LASILIX [Concomitant]
     Active Substance: FUROSEMIDE
  18. CARDENSIEL [Concomitant]
     Active Substance: BISOPROLOL FUMARATE
  19. CERIS [Concomitant]
     Active Substance: TROSPIUM CHLORIDE

REACTIONS (15)
  - Bronchopneumonia [Recovered/Resolved]
  - Genitourinary tract infection [Not Recovered/Not Resolved]
  - Cystitis [Recovered/Resolved]
  - Bronchitis [Recovered/Resolved]
  - Femoral neck fracture [Unknown]
  - Dyspnoea [Not Recovered/Not Resolved]
  - Fracture [Recovering/Resolving]
  - Bronchopneumonia [Unknown]
  - Urinary tract infection [Unknown]
  - Pleural effusion [Not Recovered/Not Resolved]
  - Hyperparathyroidism [Unknown]
  - Genitourinary tract infection [Unknown]
  - Cardiac failure [Unknown]
  - Fall [Unknown]
  - Embolism [Unknown]

NARRATIVE: CASE EVENT DATE: 20090827
